FAERS Safety Report 9300834 (Version 1)
Quarter: 2013Q2

REPORT INFORMATION
  Report Type: Spontaneous
  Country: GB (occurrence: GB)
  Receive Date: 20130521
  Receipt Date: 20130521
  Transmission Date: 20140414
  Serious: Yes (Hospitalization)
  Sender: FDA-Public Use
  Company Number: PHHY2013GB048995

PATIENT
  Age: 65 Year
  Sex: Male

DRUGS (14)
  1. OMEPRAZOLE [Suspect]
     Dosage: 20 MG, QD
     Route: 048
     Dates: end: 20130422
  2. SUTENT [Suspect]
     Indication: CLEAR CELL RENAL CELL CARCINOMA
     Dosage: 50 MG, QD
     Route: 048
     Dates: start: 20130326, end: 20130421
  3. AMLODIPINE [Concomitant]
     Dosage: 5 MG, QD
     Route: 048
  4. ATORVASTATIN [Concomitant]
     Dosage: 20 MG, AT NIGHT
     Route: 048
  5. CODEINE [Concomitant]
     Indication: PAIN
     Dosage: 60 MG, QID
     Route: 048
  6. DOMPERIDONE [Concomitant]
     Indication: NAUSEA
     Dosage: 20 MG, TID
     Route: 048
     Dates: start: 20130326
  7. EZETIMIBE [Concomitant]
     Dosage: 10 MG, QD
     Route: 048
  8. GABAPENTIN [Concomitant]
     Dosage: 300 MG, TID
     Route: 048
  9. GLICLAZIDE [Concomitant]
     Dosage: 80 MG, BID
     Route: 048
  10. LISINOPRIL [Concomitant]
     Dosage: 20 MG, QD
     Route: 048
  11. METFORMIN [Concomitant]
     Dosage: 1 G, BID
     Route: 048
  12. PARACETAMOL [Concomitant]
     Indication: PAIN
     Dosage: 1 G, QID
     Route: 048
  13. SITAGLIPTIN [Concomitant]
     Dosage: 100 MG, QD
     Route: 048
  14. DICLOFENAC [Concomitant]
     Indication: PAIN
     Dosage: 100 MG, AT NIGHT
     Route: 054

REACTIONS (4)
  - Syncope [Unknown]
  - Orthostatic hypotension [Unknown]
  - Thrombocytopenia [Recovering/Resolving]
  - Hyponatraemia [Recovered/Resolved]
